FAERS Safety Report 18591840 (Version 1)
Quarter: 2020Q4

REPORT INFORMATION
  Report Type: Report from Study
  Country: None (occurrence: RO)
  Receive Date: 20201208
  Receipt Date: 20201208
  Transmission Date: 20210114
  Serious: Yes (Life-Threatening, Hospitalization)
  Sender: FDA-Public Use
  Company Number: RO-ABBVIE-20P-135-3679061-00

PATIENT
  Age: 64 Year
  Sex: Female
  Weight: 67 kg

DRUGS (11)
  1. VENETOCLAX. [Suspect]
     Active Substance: VENETOCLAX
     Dosage: DAY 2; CYCLE = 28 DAYS
     Route: 048
     Dates: start: 20201023, end: 20201023
  2. VENETOCLAX. [Suspect]
     Active Substance: VENETOCLAX
     Dosage: DAYS 3 - 21; CYCLE = 28 DAYS
     Route: 048
     Dates: start: 20201024, end: 20201110
  3. DIAPREL [Concomitant]
     Active Substance: GLICLAZIDE
     Indication: DIABETES MELLITUS
     Route: 048
  4. DIUREX [Concomitant]
     Indication: OEDEMA
     Route: 048
  5. AMLODIPINE [Concomitant]
     Active Substance: AMLODIPINE BESYLATE
     Indication: PRODUCT USED FOR UNKNOWN INDICATION
  6. AZACITIDINE. [Concomitant]
     Active Substance: AZACITIDINE
     Indication: LEUKAEMIA
     Route: 042
     Dates: start: 20200319
  7. AZACITIDINE. [Concomitant]
     Active Substance: AZACITIDINE
     Route: 042
     Dates: start: 20201022, end: 20201028
  8. ACICLOVIR [Concomitant]
     Active Substance: ACYCLOVIR
     Indication: PROPHYLAXIS
     Route: 048
  9. SUMETROLIM [Concomitant]
     Active Substance: SULFAMETHOXAZOLE\TRIMETHOPRIM
     Indication: PROPHYLAXIS
     Dosage: 400/80 MG
     Route: 048
  10. VENETOCLAX. [Suspect]
     Active Substance: VENETOCLAX
     Indication: ACUTE MYELOID LEUKAEMIA
     Dosage: DAY 1; CYCLE = 28 DAYS
     Route: 048
     Dates: start: 20201022, end: 20201022
  11. CONCOR [Concomitant]
     Active Substance: BISOPROLOL FUMARATE
     Indication: TACHYCARDIA
     Route: 048

REACTIONS (4)
  - Pancytopenia [Recovering/Resolving]
  - Bronchopneumopathy [Recovering/Resolving]
  - Sinusitis [Recovering/Resolving]
  - Sepsis [Recovering/Resolving]

NARRATIVE: CASE EVENT DATE: 20201107
